FAERS Safety Report 22653603 (Version 1)
Quarter: 2023Q2

REPORT INFORMATION
  Report Type: Spontaneous
  Country: GB (occurrence: GB)
  Receive Date: 20230629
  Receipt Date: 20230629
  Transmission Date: 20230721
  Serious: Yes (Disabling)
  Sender: FDA-Public Use
  Company Number: GB-MHRA-MED-202306181859221850-FJMBH

PATIENT
  Sex: Male

DRUGS (1)
  1. VENLAFAXINE [Suspect]
     Active Substance: VENLAFAXINE HYDROCHLORIDE
     Indication: Adverse drug reaction
     Dosage: 75 MILLIGRAM DAILY; 75MG ONCE PER DAY (MORNING)
     Route: 065
     Dates: end: 20220901

REACTIONS (6)
  - Erectile dysfunction [Not Recovered/Not Resolved]
  - Genital anaesthesia [Not Recovered/Not Resolved]
  - Apathy [Not Recovered/Not Resolved]
  - Restless legs syndrome [Recovered/Resolved with Sequelae]
  - Orthostatic hypotension [Recovered/Resolved]
  - Night sweats [Recovered/Resolved]

NARRATIVE: CASE EVENT DATE: 20190101
